FAERS Safety Report 9605601 (Version 2)
Quarter: 2013Q4

REPORT INFORMATION
  Report Type: Spontaneous
  Country: US (occurrence: US)
  Receive Date: 20131008
  Receipt Date: 20131016
  Transmission Date: 20140711
  Serious: Yes (Hospitalization, Other)
  Sender: FDA-Public Use
  Company Number: US-BAXTER-2013BAX038374

PATIENT
  Age: 47 Year
  Sex: Female
  Weight: 100 kg

DRUGS (9)
  1. GAMMAGARD LIQUID [Suspect]
     Indication: IMMUNODEFICIENCY COMMON VARIABLE
     Route: 058
     Dates: start: 201212, end: 201305
  2. GAMMAGARD LIQUID [Suspect]
     Route: 058
     Dates: start: 201307
  3. PLAQUENIL [Concomitant]
     Indication: IMMUNE SYSTEM DISORDER
     Route: 048
  4. PLAQUENIL [Concomitant]
     Indication: CONNECTIVE TISSUE DISORDER
  5. MACROBID [Concomitant]
     Indication: URINARY TRACT DISORDER
     Route: 048
  6. MACROBID [Concomitant]
     Indication: CYSTITIS INTERSTITIAL
  7. PRIVIGEN [Concomitant]
     Indication: IMMUNODEFICIENCY COMMON VARIABLE
     Route: 042
     Dates: start: 201211, end: 201211
  8. EXALGO [Concomitant]
     Indication: PAIN MANAGEMENT
     Route: 048
     Dates: start: 2012
  9. TRAMADOL [Concomitant]
     Indication: PAIN MANAGEMENT
     Route: 048
     Dates: start: 2012

REACTIONS (5)
  - Meningitis aseptic [Unknown]
  - Back pain [Recovered/Resolved]
  - Musculoskeletal stiffness [Recovered/Resolved]
  - Headache [Recovered/Resolved]
  - Pyrexia [Recovered/Resolved]
